FAERS Safety Report 5126241-6 (Version None)
Quarter: 2006Q4

REPORT INFORMATION
  Report Type: 
  Country: None (occurrence: None)
  Receive Date: 20061012
  Receipt Date: 20061002
  Transmission Date: 20070319
  Serious: Yes (Other)
  Sender: FDA-Public Use
  Company Number: SE-ABBOTT-06P-150-0345509-00

PATIENT
  Sex: Male

DRUGS (10)
  1. LIPANTHYL [Suspect]
     Indication: HYPERLIPIDAEMIA
     Route: 048
     Dates: start: 20010101, end: 20050224
  2. ISOPHANE INSULIN [Concomitant]
     Indication: DIABETES MELLITUS
  3. CO-DIOVAN [Concomitant]
     Indication: DRUG USE FOR UNKNOWN INDICATION
  4. CO-DIOVAN [Concomitant]
  5. FUROSEMIDE [Concomitant]
     Indication: DRUG USE FOR UNKNOWN INDICATION
  6. FELODIPINE [Concomitant]
     Indication: DRUG USE FOR UNKNOWN INDICATION
  7. METOPROLOL TARTRATE [Concomitant]
     Indication: DRUG USE FOR UNKNOWN INDICATION
  8. TROMBYL [Concomitant]
     Indication: DRUG USE FOR UNKNOWN INDICATION
  9. INSULIN LISPRO [Concomitant]
     Indication: DIABETES MELLITUS
  10. DIOVAN [Concomitant]
     Indication: DRUG USE FOR UNKNOWN INDICATION
     Dates: start: 20050201

REACTIONS (1)
  - RENAL FAILURE [None]
